FAERS Safety Report 20296950 (Version 2)
Quarter: 2022Q1

REPORT INFORMATION
  Report Type: Other
  Country: BR (occurrence: None)
  Receive Date: 20220105
  Receipt Date: 20220114
  Transmission Date: 20220424
  Serious: Yes (Other)
  Sender: FDA-Public Use
  Company Number: BR-ROCHE-2993904

PATIENT
  Age: 35 Year
  Sex: Female
  Weight: 61 kg

DRUGS (8)
  1. MABTHERA [Suspect]
     Active Substance: RITUXIMAB
     Indication: Systemic scleroderma
     Route: 041
     Dates: start: 20211229, end: 20211229
  2. METHYLPREDNISOLONE [Concomitant]
     Active Substance: METHYLPREDNISOLONE
     Indication: Unevaluable event
     Route: 042
     Dates: start: 20211229, end: 20211229
  3. DIPHENHYDRAMINE [Concomitant]
     Active Substance: DIPHENHYDRAMINE
     Indication: Unevaluable event
     Route: 042
     Dates: start: 20211229, end: 20211229
  4. PREDNISONE [Concomitant]
     Active Substance: PREDNISONE
  5. VIAGRA [Concomitant]
     Active Substance: SILDENAFIL CITRATE
  6. AMITRIPTYLINE HYDROCHLORIDE [Concomitant]
     Active Substance: AMITRIPTYLINE HYDROCHLORIDE
  7. MYCOPHENOLIC ACID [Concomitant]
     Active Substance: MYCOPHENOLIC ACID
     Dosage: 4 TABLETS/DAY
  8. BOSENTAN [Concomitant]
     Active Substance: BOSENTAN

REACTIONS (2)
  - Oropharyngeal discomfort [Recovered/Resolved]
  - Off label use [Unknown]

NARRATIVE: CASE EVENT DATE: 20211229
